FAERS Safety Report 9849098 (Version 1)
Quarter: 2014Q1

REPORT INFORMATION
  Report Type: Spontaneous
  Country: US (occurrence: None)
  Receive Date: 20140124
  Receipt Date: 20140124
  Transmission Date: 20141002
  Serious: No
  Sender: FDA-Public Use
  Company Number: None

PATIENT
  Age: 67 Year
  Sex: Female

DRUGS (1)
  1. ENBREL [Suspect]
     Route: 058
     Dates: start: 20120124

REACTIONS (2)
  - Injection site scar [None]
  - Device difficult to use [None]
